FAERS Safety Report 12476664 (Version 3)
Quarter: 2016Q3

REPORT INFORMATION
  Report Type: Report from Study
  Country: AU (occurrence: AU)
  Receive Date: 20160617
  Receipt Date: 20160719
  Transmission Date: 20161109
  Serious: Yes (Hospitalization)
  Sender: FDA-Public Use
  Company Number: AU-B.I. PHARMACEUTICALS,INC./RIDGEFIELD-2016-BI-38327AU

PATIENT
  Age: 69 Year
  Sex: Male

DRUGS (3)
  1. BIBF 1120 [Suspect]
     Active Substance: NINTEDANIB
     Indication: IDIOPATHIC PULMONARY FIBROSIS
     Dosage: 300 MG
     Route: 048
     Dates: start: 20140916, end: 20160531
  2. MELOXICAM. [Concomitant]
     Active Substance: MELOXICAM
     Indication: PLEURITIC PAIN
     Dosage: 15 MG
     Route: 048
     Dates: start: 20160523
  3. PREDNISOLONE. [Concomitant]
     Active Substance: PREDNISOLONE
     Indication: PLEURITIC PAIN
     Dosage: 50 MG
     Route: 048
     Dates: start: 20160528

REACTIONS (2)
  - Pleurisy [Not Recovered/Not Resolved]
  - Haemothorax [Not Recovered/Not Resolved]

NARRATIVE: CASE EVENT DATE: 20160529
